FAERS Safety Report 7315275-9 (Version None)
Quarter: 2011Q1

REPORT INFORMATION
  Report Type: 
  Country: None (occurrence: None)
  Receive Date: 20110225
  Receipt Date: 20110215
  Transmission Date: 20110831
  Serious: Yes (Death, Life-Threatening, Hospitalization, Other)
  Sender: FDA-Public Use
  Company Number: DE-ELI_LILLY_AND_COMPANY-DE201102003865

PATIENT
  Age: 73 Year
  Sex: Female

DRUGS (3)
  1. CALCIUM SANDOZ [Concomitant]
  2. INSULIN [Concomitant]
  3. FORTEO [Suspect]
     Indication: OSTEOPOROSIS
     Dosage: UNK, DAILY (1/D)
     Route: 058
     Dates: start: 20100118

REACTIONS (9)
  - MYOCARDIAL INFARCTION [None]
  - DYSPNOEA [None]
  - FEEDING DISORDER [None]
  - BLOOD GLUCOSE INCREASED [None]
  - MALAISE [None]
  - PNEUMOTHORAX [None]
  - NASOPHARYNGITIS [None]
  - DEATH [None]
  - DRUG DOSE OMISSION [None]
